FAERS Safety Report 17001231 (Version 1)
Quarter: 2019Q4

REPORT INFORMATION
  Report Type: Spontaneous
  Country: FR (occurrence: FR)
  Receive Date: 20191106
  Receipt Date: 20191106
  Transmission Date: 20200122
  Serious: Yes (Hospitalization)
  Sender: FDA-Public Use
  Company Number: FR-009507513-1910FRA016066

PATIENT
  Age: 61 Year
  Sex: Male
  Weight: 67.7 kg

DRUGS (14)
  1. CELLCEPT [Concomitant]
     Active Substance: MYCOPHENOLATE MOFETIL\MYCOPHENOLATE MOFETIL HYDROCHLORIDE
     Indication: PROPHYLAXIS AGAINST TRANSPLANT REJECTION
     Dosage: 3-0-3
     Route: 048
     Dates: start: 201603
  2. LIPTRUZET [Suspect]
     Active Substance: ATORVASTATIN CALCIUM\EZETIMIBE
     Indication: DYSLIPIDAEMIA
     Dosage: 0-0-1
     Route: 048
     Dates: start: 20171222
  3. INEXIUM (ESOMEPRAZOLE MAGNESIUM) [Concomitant]
     Active Substance: ESOMEPRAZOLE MAGNESIUM
     Indication: PROPHYLAXIS AGAINST GASTROINTESTINAL ULCER
     Dosage: 0-0-1
     Route: 048
     Dates: start: 201603
  4. TEMERIT [Suspect]
     Active Substance: NEBIVOLOL
     Indication: CARDIAC FAILURE
     Dosage: 1-0-1 (DOUBLE SCORED TABLET)
     Route: 048
     Dates: start: 20170606
  5. EPREX [Concomitant]
     Active Substance: ERYTHROPOIETIN
     Indication: ANAEMIA
     Dosage: 8000 INTERNATIONAL UNIT, QM
     Route: 058
     Dates: start: 20170914, end: 20190717
  6. DOLIPRANE [Concomitant]
     Active Substance: ACETAMINOPHEN
     Indication: PAIN
     Dosage: AS NECESSARY (MAXIMUM 4 PER DAY)
     Route: 048
     Dates: start: 201603
  7. PENTACARINAT [Suspect]
     Active Substance: PENTAMIDINE ISETHIONATE
     Indication: ANTIBIOTIC PROPHYLAXIS
     Dosage: 300 MILLIGRAM, QM (POWDER FOR AEROSOL AND FOR PARENTERAL USE)
     Route: 055
     Dates: start: 20160927
  8. CORTANCYL [Concomitant]
     Active Substance: PREDNISONE
     Indication: PROPHYLAXIS AGAINST TRANSPLANT REJECTION
     Dosage: 1.5 CP/DAY
     Route: 048
     Dates: start: 201603
  9. AMLOR [Suspect]
     Active Substance: AMLODIPINE BESYLATE
     Indication: HYPERTENSION
     Dosage: 0-0-1
     Route: 048
     Dates: start: 20170103
  10. LASILIX [Suspect]
     Active Substance: FUROSEMIDE
     Indication: CARDIAC FAILURE
     Dosage: 1-0-0
     Route: 048
     Dates: start: 20190522
  11. CERTICAN [Suspect]
     Active Substance: EVEROLIMUS
     Indication: PROPHYLAXIS AGAINST TRANSPLANT REJECTION
     Dosage: 1.25 MG MORNING AND EVENING
     Route: 048
     Dates: start: 20160914, end: 20191008
  12. ZYRTEC [Suspect]
     Active Substance: CETIRIZINE HYDROCHLORIDE
     Indication: PRODUCT USED FOR UNKNOWN INDICATION
     Dosage: 1-0-0
     Route: 048
     Dates: start: 20190522
  13. SODIUM BICARBONATE. [Suspect]
     Active Substance: SODIUM BICARBONATE
     Indication: RENAL FAILURE
     Dosage: 1-0-1
     Route: 048
     Dates: start: 20161031, end: 20190717
  14. KARDEGIC [Concomitant]
     Active Substance: ASPIRIN DL-LYSINE
     Indication: HEART TRANSPLANT
     Dosage: 1-0-0 (POWDER FOR ORAL SOLUTION IN BAG-DOSE)
     Route: 048
     Dates: start: 201603

REACTIONS (2)
  - Pyrexia [Recovering/Resolving]
  - Anaemia [Recovering/Resolving]

NARRATIVE: CASE EVENT DATE: 2019
